FAERS Safety Report 21223683 (Version 1)
Quarter: 2022Q3

REPORT INFORMATION
  Report Type: Spontaneous
  Country: DE (occurrence: DE)
  Receive Date: 20220817
  Receipt Date: 20220817
  Transmission Date: 20221026
  Serious: Yes (Hospitalization, Other)
  Sender: FDA-Public Use
  Company Number: FM 12510

PATIENT
  Sex: Male

DRUGS (3)
  1. TRIPTODUR [Suspect]
     Active Substance: TRIPTORELIN
     Indication: Paedophilia
     Dosage: STRENGTH 11.25 MG (11.25 MG, 12 WK)
     Route: 065
     Dates: start: 2020
  2. TRIPTODUR [Suspect]
     Active Substance: TRIPTORELIN
  3. TRIPTODUR [Suspect]
     Active Substance: TRIPTORELIN

REACTIONS (3)
  - Malignant melanoma [Unknown]
  - Lymphadenectomy [Unknown]
  - Skin disorder [Unknown]
